FAERS Safety Report 18317906 (Version 1)
Quarter: 2020Q3

REPORT INFORMATION
  Report Type: Spontaneous
  Country: US (occurrence: US)
  Receive Date: 20200925
  Receipt Date: 20200925
  Transmission Date: 20201103
  Serious: Yes (Hospitalization)
  Sender: FDA-Public Use
  Company Number: None

PATIENT
  Age: 59 Year
  Sex: Female

DRUGS (13)
  1. HYDROCHLOROT [Concomitant]
     Active Substance: HYDROCHLOROTHIAZIDE
  2. MECLIZINE [Concomitant]
     Active Substance: MECLIZINE HYDROCHLORIDE
  3. VITAMIN D [Concomitant]
     Active Substance: VITAMIN D NOS
  4. ADDERALL [Concomitant]
     Active Substance: AMPHETAMINE ASPARTATE\AMPHETAMINE SULFATE\DEXTROAMPHETAMINE SACCHARATE\DEXTROAMPHETAMINE SULFATE
  5. DICLOFENAC [Concomitant]
     Active Substance: DICLOFENAC
  6. METFORMIN [Concomitant]
     Active Substance: METFORMIN HYDROCHLORIDE
  7. PAROXETINE. [Concomitant]
     Active Substance: PAROXETINE
  8. TALTZ [Suspect]
     Active Substance: IXEKIZUMAB
     Indication: PSORIASIS
     Dosage: ?          OTHER FREQUENCY:AT WK 4,6,8,10;?
     Route: 058
     Dates: start: 20200731
  9. AMPHET [Concomitant]
  10. ARIPRAZOLE [Concomitant]
     Active Substance: ARIPIPRAZOLE
  11. INVOKANA [Concomitant]
     Active Substance: CANAGLIFLOZIN
  12. BACLOFEN. [Concomitant]
     Active Substance: BACLOFEN
  13. LOSARTAN POT [Concomitant]
     Active Substance: LOSARTAN POTASSIUM

REACTIONS (3)
  - Diarrhoea haemorrhagic [None]
  - Taste disorder [None]
  - Burning sensation [None]

NARRATIVE: CASE EVENT DATE: 20200924
